FAERS Safety Report 11330488 (Version 2)
Quarter: 2015Q3

REPORT INFORMATION
  Report Type: Report from Study
  Country: US (occurrence: US)
  Receive Date: 20150803
  Receipt Date: 20150806
  Transmission Date: 20151125
  Serious: No
  Sender: FDA-Public Use
  Company Number: US-ASTRAZENECA-2015SE72777

PATIENT
  Sex: Female

DRUGS (1)
  1. FARXIGA [Suspect]
     Active Substance: DAPAGLIFLOZIN PROPANEDIOL
     Route: 048

REACTIONS (6)
  - Pollakiuria [Unknown]
  - Drug dose omission [Unknown]
  - Rhinorrhoea [Unknown]
  - Dizziness [Unknown]
  - Dysuria [Unknown]
  - Musculoskeletal chest pain [Unknown]
